FAERS Safety Report 7474298-X (Version None)
Quarter: 2011Q2

REPORT INFORMATION
  Report Type: 
  Country: None (occurrence: None)
  Receive Date: 20110511
  Receipt Date: 20110502
  Transmission Date: 20111010
  Serious: Yes (Other)
  Sender: FDA-Public Use
  Company Number: AR-AMGEN-ARGSP2011017160

PATIENT
  Age: 58 Year
  Sex: Female
  Weight: 69 kg

DRUGS (6)
  1. PILOCARPINE [Concomitant]
     Dosage: UNK
     Route: 048
     Dates: start: 20080101
  2. ENBREL [Suspect]
     Dosage: UNK
     Dates: start: 20080601, end: 20101218
  3. BROMAZEPAM [Concomitant]
     Dosage: UNK
     Route: 048
  4. ENBREL [Suspect]
     Dosage: UNK
     Dates: start: 20110118
  5. ENBREL [Suspect]
     Indication: RHEUMATOID ARTHRITIS
     Dosage: 50 MG, UNK
     Route: 058
     Dates: start: 20050101, end: 20080101
  6. MELOXICAM [Concomitant]
     Dosage: UNK
     Route: 048
     Dates: start: 20050101

REACTIONS (1)
  - BURSITIS [None]
